FAERS Safety Report 9914692 (Version 2)
Quarter: 2014Q2

REPORT INFORMATION
  Report Type: Report from Study
  Country: PR (occurrence: PR)
  Receive Date: 20140220
  Receipt Date: 20140609
  Transmission Date: 20141212
  Serious: Yes (Other)
  Sender: FDA-Public Use
  Company Number: PR-ABBVIE-14P-131-1204089-00

PATIENT
  Sex: Female
  Weight: 54.48 kg

DRUGS (6)
  1. HUMIRA [Suspect]
     Indication: RHEUMATOID ARTHRITIS
     Route: 058
     Dates: end: 20140120
  2. MOBIC [Suspect]
     Indication: PRODUCT USED FOR UNKNOWN INDICATION
  3. ANAPROX [Suspect]
     Indication: PAIN
  4. ASPIRIN [Suspect]
     Indication: PAIN
  5. METHOTREXATE [Concomitant]
     Indication: RHEUMATOID ARTHRITIS
     Route: 048
     Dates: end: 20140131
  6. UNKNOWN MEDICATION [Concomitant]
     Indication: ANGIOPATHY
     Route: 048

REACTIONS (7)
  - Arthropathy [Not Recovered/Not Resolved]
  - Lower limb fracture [Not Recovered/Not Resolved]
  - Gastritis erosive [Not Recovered/Not Resolved]
  - Hiatus hernia [Not Recovered/Not Resolved]
  - Gastritis [Not Recovered/Not Resolved]
  - Haemoglobin decreased [Not Recovered/Not Resolved]
  - Visual impairment [Unknown]
